FAERS Safety Report 8867091 (Version 1)
Quarter: 2012Q4

REPORT INFORMATION
  Report Type: 
  Country: US (occurrence: US)
  Receive Date: 20121025
  Receipt Date: 20121025
  Transmission Date: 20130627
  Serious: No
  Sender: FDA-Public Use
  Company Number: US-AMGEN-USASP2012014862

PATIENT
  Age: 57 Year
  Sex: Male

DRUGS (11)
  1. ENBREL [Suspect]
     Indication: PRODUCT USED FOR UNKNOWN INDICATION
     Dosage: 50 mg, qwk
     Route: 058
  2. ACIPHEX [Concomitant]
     Dosage: 20 mg, UNK
  3. DYAZIDE [Concomitant]
     Dosage: UNK
  4. ADVIL                              /00044201/ [Concomitant]
     Dosage: UNK
  5. BENTYL [Concomitant]
     Dosage: 20 mg, UNK
  6. RYNATAN                            /00311201/ [Concomitant]
     Dosage: UNK
  7. ANTIVERT                           /00007101/ [Concomitant]
     Dosage: 12.5 mg, UNK
  8. CLARITIN                           /00413701/ [Concomitant]
     Dosage: 10 mg, UNK
  9. FOLIC ACID [Concomitant]
     Dosage: 1 mg, UNK
  10. DEXILANT [Concomitant]
     Dosage: 30 mg, UNK
  11. ARAVA [Concomitant]
     Dosage: 20 mg, UNK

REACTIONS (1)
  - Visual impairment [Unknown]
